FAERS Safety Report 8988679 (Version 1)
Quarter: 2012Q4

REPORT INFORMATION
  Report Type: 
  Country: US (occurrence: US)
  Receive Date: 20121227
  Receipt Date: 20121227
  Transmission Date: 20130627
  Serious: Yes (Life-Threatening)
  Sender: FDA-Public Use
  Company Number: US-B.I. PHARMACEUTICALS,INC./RIDGEFIELD-2012-BI-03915BP

PATIENT
  Sex: Female

DRUGS (1)
  1. PRADAXA [Suspect]
     Indication: ATRIAL FIBRILLATION
     Route: 048
     Dates: start: 2012, end: 20121214

REACTIONS (5)
  - Renal failure acute [Unknown]
  - Lung neoplasm malignant [Unknown]
  - Sepsis [Unknown]
  - Catheter site haemorrhage [Unknown]
  - Blood creatinine increased [Unknown]
